FAERS Safety Report 4493055-X (Version None)
Quarter: 2004Q4

REPORT INFORMATION
  Report Type: 
  Country: None (occurrence: None)
  Receive Date: 20041101
  Receipt Date: 20041019
  Transmission Date: 20050328
  Serious: Yes (Other)
  Sender: FDA-Public Use
  Company Number: 200412914GDS

PATIENT
  Age: 39 Year
  Sex: Female
  Weight: 57 kg

DRUGS (1)
  1. CANESTEN GYNO (CLOTRIMAZOLE) [Suspect]
     Indication: VAGINAL CANDIDIASIS
     Dosage: 200 MG, TOTAL DAILY, VAGINAL
     Route: 067
     Dates: start: 20041014

REACTIONS (1)
  - VAGINAL HAEMORRHAGE [None]
